FAERS Safety Report 6965267-4 (Version None)
Quarter: 2010Q3

REPORT INFORMATION
  Report Type: 
  Country: None (occurrence: None)
  Receive Date: 20100903
  Receipt Date: 20100825
  Transmission Date: 20110219
  Serious: Yes (Other)
  Sender: FDA-Public Use
  Company Number: US-JNJCH-2010019544

PATIENT
  Age: 14 Year
  Sex: Male
  Weight: 47.6 kg

DRUGS (2)
  1. CHILDREN'S BENADRYL ALLERGY [Suspect]
     Indication: ARTHROPOD STING
     Dosage: TEXT:2 DOSES FOR A TOTAL OF 25 MG
     Route: 048
     Dates: start: 20100820, end: 20100820
  2. CHILDREN'S BENADRYL ALLERGY [Suspect]
     Indication: ARTHROPOD STING
     Dosage: TEXT:TWO TABLETS ONCE
     Route: 048
     Dates: start: 20100821, end: 20100821

REACTIONS (5)
  - CONFUSIONAL STATE [None]
  - EXPIRED DRUG ADMINISTERED [None]
  - OFF LABEL USE [None]
  - PRODUCT QUALITY ISSUE [None]
  - TREMOR [None]
